FAERS Safety Report 9603804 (Version 1)
Quarter: 2013Q4

REPORT INFORMATION
  Report Type: Spontaneous
  Country: US (occurrence: US)
  Receive Date: 20131008
  Receipt Date: 20131008
  Transmission Date: 20140711
  Serious: No
  Sender: FDA-Public Use
  Company Number: US-009507513-1309USA012383

PATIENT
  Age: 74 Year
  Sex: Female

DRUGS (2)
  1. ZIOPTAN [Suspect]
     Indication: INTRAOCULAR PRESSURE INCREASED
     Dosage: 1 DROP IN EACH EYE AT NIGHT
     Route: 047
     Dates: start: 201308
  2. DORZOLAMIDE HYDROCHLORIDE [Concomitant]

REACTIONS (1)
  - Alopecia [Not Recovered/Not Resolved]
